FAERS Safety Report 15440258 (Version 3)
Quarter: 2018Q4

REPORT INFORMATION
  Report Type: Spontaneous
  Country: EG (occurrence: EG)
  Receive Date: 20180928
  Receipt Date: 20181017
  Transmission Date: 20190204
  Serious: Yes (Life-Threatening, Disabling, Other)
  Sender: FDA-Public Use
  Company Number: PHHY2018EG109644

PATIENT
  Age: 55 Year
  Sex: Male

DRUGS (2)
  1. TAREG [Suspect]
     Active Substance: VALSARTAN
     Indication: CARDIAC FAILURE
     Dosage: 160 MG, UNK
     Route: 048
  2. ENTRESTO [Suspect]
     Active Substance: SACUBITRIL\VALSARTAN
     Indication: CARDIAC FAILURE
     Dosage: 50 MG, BID
     Route: 048

REACTIONS (5)
  - Blood creatinine increased [Unknown]
  - Urine output decreased [Unknown]
  - Pyrexia [Unknown]
  - Renal impairment [Unknown]
  - Sepsis [Unknown]
